FAERS Safety Report 19413984 (Version 1)
Quarter: 2021Q2

REPORT INFORMATION
  Report Type: Spontaneous
  Country: US (occurrence: US)
  Receive Date: 20210615
  Receipt Date: 20210615
  Transmission Date: 20210717
  Serious: Yes (Other)
  Sender: FDA-Public Use
  Company Number: US-BLUEPRINT MEDICINES CORPORATION-SP-US-2021-000846

PATIENT
  Sex: Female

DRUGS (1)
  1. AYVAKIT [Suspect]
     Active Substance: AVAPRITINIB
     Indication: GASTROINTESTINAL STROMAL TUMOUR
     Route: 048
     Dates: start: 20200123

REACTIONS (11)
  - Neoplasm [Unknown]
  - Bladder prolapse [Unknown]
  - Sacroiliitis [Unknown]
  - Feeling abnormal [Unknown]
  - Back pain [Unknown]
  - Nephrostomy [Unknown]
  - Off label use [Unknown]
  - Drug ineffective [Unknown]
  - Gastric dilatation [Unknown]
  - Rectal prolapse [Unknown]
  - Food intolerance [Unknown]
